FAERS Safety Report 5008014-8 (Version None)
Quarter: 2006Q2

REPORT INFORMATION
  Report Type: 
  Country: None (occurrence: None)
  Receive Date: 20060404
  Receipt Date: 20050729
  Transmission Date: 20061013
  Serious: Yes (Other)
  Sender: FDA-Public Use
  Company Number: 2005062438

PATIENT
  Age: 33 Year
  Sex: Male

DRUGS (1)
  1. GEODON [Suspect]
     Indication: PSYCHOTIC DISORDER
     Dosage: 180 MG (60 MG, 2 IN 1 D), ORAL
     Route: 048
     Dates: start: 20040206, end: 20050310

REACTIONS (5)
  - ACCIDENTAL OVERDOSE [None]
  - BUNDLE BRANCH BLOCK LEFT [None]
  - BUNDLE BRANCH BLOCK RIGHT [None]
  - CHEST PAIN [None]
  - HALLUCINATION, AUDITORY [None]
